FAERS Safety Report 17369289 (Version 1)
Quarter: 2020Q1

REPORT INFORMATION
  Report Type: Spontaneous
  Country: US (occurrence: US)
  Receive Date: 20200203
  Receipt Date: 20200203
  Transmission Date: 20200409
  Serious: Yes (Disabling, Other)
  Sender: FDA-Public Use
  Company Number: None

PATIENT
  Age: 35 Year
  Sex: Female
  Weight: 63.45 kg

DRUGS (2)
  1. DEXTROAMPHET SACCHARAT, AMPHET ASPARTATE, DEXTROAMPHET SULFATE AND AMPHET SULFAT [Suspect]
     Active Substance: AMPHETAMINE ASPARTATE\AMPHETAMINE SULFATE\DEXTROAMPHETAMINE SACCHARATE\DEXTROAMPHETAMINE SULFATE
     Indication: ATTENTION DEFICIT/HYPERACTIVITY DISORDER
     Dosage: ?          QUANTITY:1 TABLET(S);OTHER FREQUENCY:BID PRN;?
     Route: 048
     Dates: start: 20200129, end: 20200201
  2. DEXTROAMPHET SACCHARAT, AMPHET ASPARTATE, DEXTROAMPHET SULFATE AND AMPHET SULFAT [Suspect]
     Active Substance: AMPHETAMINE ASPARTATE\AMPHETAMINE SULFATE\DEXTROAMPHETAMINE SACCHARATE\DEXTROAMPHETAMINE SULFATE
     Indication: ATTENTION DEFICIT/HYPERACTIVITY DISORDER
     Dosage: ?          QUANTITY:1 TABLET(S);OTHER FREQUENCY:BID PRN;?
     Route: 048

REACTIONS (17)
  - Headache [None]
  - Aphasia [None]
  - Vision blurred [None]
  - Confusional state [None]
  - Dysarthria [None]
  - Feeling jittery [None]
  - Thinking abnormal [None]
  - Altered state of consciousness [None]
  - Insomnia [None]
  - Nausea [None]
  - Irritability [None]
  - Anxiety [None]
  - Panic attack [None]
  - Myalgia [None]
  - Restlessness [None]
  - Tachycardia [None]
  - Product substitution issue [None]

NARRATIVE: CASE EVENT DATE: 20200201
